FAERS Safety Report 12896882 (Version 6)
Quarter: 2019Q2

REPORT INFORMATION
  Report Type: Spontaneous
  Country: US (occurrence: US)
  Receive Date: 20161031
  Receipt Date: 20190618
  Transmission Date: 20190711
  Serious: Yes (Other)
  Sender: FDA-Public Use
  Company Number: US-PFIZER INC-2016502001

PATIENT
  Age: 74 Year
  Sex: Female

DRUGS (22)
  1. LYRICA [Suspect]
     Active Substance: PREGABALIN
     Indication: PAIN
     Dosage: 100 MG, DAILY [(25 MG 9:00 AM, 25 MG 2:00 PM (MID-DAY), 50 MG 11:00 PM (AT BEDTIME)]
  2. MYRBETRIQ [Concomitant]
     Active Substance: MIRABEGRON
     Indication: HYPERTONIC BLADDER
     Dosage: 25 MG, 1X/DAY [BEFORE BED]
     Route: 048
     Dates: start: 2014
  3. LYRICA [Suspect]
     Active Substance: PREGABALIN
     Indication: PAIN IN EXTREMITY
     Dosage: 25 MG, 4X/DAY (25 MG 9:00 AM, 2:00 PM, 7:00 PM, 11:00 PM)
  4. LYRICA [Suspect]
     Active Substance: PREGABALIN
     Dosage: 40 MG, DAILY (10MG AM, 10MG PM, 20MG NIGHT TIME)
     Dates: start: 2009
  5. TRAMADOL. [Concomitant]
     Active Substance: TRAMADOL
     Indication: PAIN
     Dosage: 2-50 MC 9:00 AM, 2:00 PM, 7:00 PM (EVENING), 11:00 PM (BEFORE BED)
     Dates: start: 2010
  6. FLEXERIL [Concomitant]
     Active Substance: CYCLOBENZAPRINE HYDROCHLORIDE
     Indication: PAIN IN EXTREMITY
     Dosage: 10 MG TABLET, TAKE ONE-HALF TO ONE TABLET ONCE DAILY AT BEDTIME
     Route: 048
  7. MOBIC [Concomitant]
     Active Substance: MELOXICAM
     Indication: PAIN
  8. PREMARIN [Concomitant]
     Active Substance: ESTROGENS, CONJUGATED
     Dosage: 25 MG, WEEKLY
  9. BACLOFEN. [Concomitant]
     Active Substance: BACLOFEN
     Dosage: 10 MG, UNK
     Dates: end: 201609
  10. MOBIC [Concomitant]
     Active Substance: MELOXICAM
     Indication: PAIN IN EXTREMITY
     Dosage: 15 MG, AS NEEDED (ONLY AS A LAST RESORT, 2-3 PER MONTH, DAILY)
     Route: 048
  11. KLONOPIN [Concomitant]
     Active Substance: CLONAZEPAM
     Dosage: 0.5 MG, 1X/DAY (AT BEDTIME)
     Route: 048
  12. LYRICA [Suspect]
     Active Substance: PREGABALIN
     Dosage: 100 MG, DAILY (1 EVERY MORNING, 1 IN THE EVENING, 2 AT BEDTIME)
  13. TRAMADOL. [Concomitant]
     Active Substance: TRAMADOL
     Dosage: 50MG 2 AM, 2 PM, 2 EVENING, 2 NIGHT
  14. BACLOFEN. [Concomitant]
     Active Substance: BACLOFEN
     Dosage: UNK
     Dates: end: 20161004
  15. CLONAZEPAM. [Concomitant]
     Active Substance: CLONAZEPAM
     Dosage: 5 MG, UNK, (1/2-10 MG)
  16. CYCLOBENZAPRINE. [Concomitant]
     Active Substance: CYCLOBENZAPRINE
     Dosage: 10 MG, 1X/DAY (1 NIGHT)
     Dates: start: 20161004
  17. FLEXERIL [Concomitant]
     Active Substance: CYCLOBENZAPRINE HYDROCHLORIDE
     Indication: MYALGIA
  18. ULTRAM [Concomitant]
     Active Substance: TRAMADOL HYDROCHLORIDE
     Indication: PAIN
     Dosage: AS NEEDED (50MG TABLET TAKE 1-2 TABLETS EVERY 6 HOURS)
  19. CYCLOBENZAPRINE. [Concomitant]
     Active Substance: CYCLOBENZAPRINE
     Dosage: 10 MG, 1X/DAY [BEFORE BED ]
     Dates: start: 2016
  20. LYRICA [Suspect]
     Active Substance: PREGABALIN
     Indication: PAIN
     Dosage: 5 DF, DAILY (1 AM,1 PM,1  EVENING, 2 BEFORE BED)
  21. LESCOL XL [Concomitant]
     Active Substance: FLUVASTATIN SODIUM
     Indication: BLOOD CHOLESTEROL INCREASED
     Dosage: 80 MG, 1X/DAY [BEFORE BED ]
     Dates: start: 2000
  22. VITAMIN D [Concomitant]
     Active Substance: VITAMIN D NOS
     Dosage: 5000 IU, 1X/DAY (AM)
     Route: 048
     Dates: start: 2012

REACTIONS (10)
  - Intentional product use issue [Recovered/Resolved]
  - Product use issue [Unknown]
  - Insomnia [Recovered/Resolved]
  - Dysaesthesia [Not Recovered/Not Resolved]
  - Depression [Recovered/Resolved]
  - Irritability [Unknown]
  - Drug dependence [Unknown]
  - Pain in extremity [Not Recovered/Not Resolved]
  - Off label use [Unknown]
  - Muscle contracture [Not Recovered/Not Resolved]

NARRATIVE: CASE EVENT DATE: 20160101
